FAERS Safety Report 6841078-5 (Version None)
Quarter: 2010Q3

REPORT INFORMATION
  Report Type: 
  Country: None (occurrence: None)
  Receive Date: 20100714
  Receipt Date: 20070626
  Transmission Date: 20110219
  Serious: No
  Sender: FDA-Public Use
  Company Number: US-PFIZER INC-2007052851

PATIENT
  Sex: Male

DRUGS (4)
  1. CHANTIX [Suspect]
     Indication: SMOKING CESSATION THERAPY
     Dates: start: 20070617, end: 20070625
  2. TOPROL-XL [Concomitant]
  3. ZETIA [Concomitant]
  4. LIPITOR [Concomitant]

REACTIONS (2)
  - ABNORMAL DREAMS [None]
  - PERSONALITY CHANGE [None]
